FAERS Safety Report 5658657-3 (Version None)
Quarter: 2008Q1

REPORT INFORMATION
  Report Type: 
  Country: None (occurrence: None)
  Receive Date: 20080310
  Receipt Date: 20070319
  Transmission Date: 20080703
  Serious: No
  Sender: FDA-Public Use
  Company Number: US-BAYER-200710851BCC

PATIENT
  Age: 84 Year
  Sex: Female
  Weight: 51 kg

DRUGS (2)
  1. ALEVE [Suspect]
     Indication: BACK PAIN
     Dosage: UNIT DOSE: 220 MG
     Route: 048
     Dates: start: 20060901
  2. UNKNOWN PAIN MEDICATION [Concomitant]

REACTIONS (1)
  - CONSTIPATION [None]
